FAERS Safety Report 8359300-5 (Version None)
Quarter: 2012Q2

REPORT INFORMATION
  Report Type: 
  Country: None (occurrence: None)
  Receive Date: 20120515
  Receipt Date: 20120507
  Transmission Date: 20120825
  Serious: Yes (Hospitalization, Disabling)
  Sender: FDA-Public Use
  Company Number: US-BAYER-2011-039204

PATIENT
  Age: 50 Year
  Sex: Female
  Weight: 70 kg

DRUGS (12)
  1. MORPHINE [Concomitant]
     Indication: BACK PAIN
     Dosage: 10 MG, UNK
     Dates: start: 20050713
  2. CALCIUM [Concomitant]
     Dosage: UNK
     Route: 048
     Dates: start: 20050713
  3. PREDNISONE [Concomitant]
     Indication: BACK PAIN
     Dosage: 40 MG, UNK
     Route: 048
     Dates: start: 20050713
  4. VISTARIL [Concomitant]
     Indication: BACK PAIN
     Dosage: 25 MG, UNK
     Route: 048
     Dates: start: 20050713
  5. YASMIN [Suspect]
     Indication: DYSFUNCTIONAL UTERINE BLEEDING
     Dosage: UNK
     Dates: start: 20050607, end: 20051003
  6. OTHER ANALGESICS AND ANTIPYRETICS [Concomitant]
     Dosage: UNK
     Dates: start: 20051005
  7. ANALGESICS [Concomitant]
  8. IRON [Concomitant]
     Dosage: UNK
     Route: 048
     Dates: start: 20050713
  9. ANALGESICS [Concomitant]
     Dosage: UNK
     Route: 048
     Dates: start: 20051003
  10. IBUPROFEN [Concomitant]
     Dosage: UNK UNK, PRN
     Dates: start: 20050713
  11. PREMARIN [Concomitant]
     Dosage: UNK
     Dates: start: 20050601
  12. MULTI-VITAMINS [Concomitant]
     Indication: SUPPLEMENTATION THERAPY
     Dosage: UNK
     Dates: start: 20050913, end: 20051003

REACTIONS (11)
  - MUSCULOSKELETAL DISCOMFORT [None]
  - DYSPNOEA [None]
  - PAIN IN EXTREMITY [None]
  - DEEP VEIN THROMBOSIS [None]
  - PAIN [None]
  - ERYTHEMA [None]
  - EMOTIONAL DISTRESS [None]
  - OEDEMA PERIPHERAL [None]
  - PULMONARY EMBOLISM [None]
  - GENERAL PHYSICAL HEALTH DETERIORATION [None]
  - ANXIETY [None]
